FAERS Safety Report 24780104 (Version 3)
Quarter: 2025Q2

REPORT INFORMATION
  Report Type: Spontaneous
  Country: JP (occurrence: JP)
  Receive Date: 20241227
  Receipt Date: 20250526
  Transmission Date: 20250717
  Serious: Yes (Other)
  Sender: GLAXOSMITHKLINE
  Company Number: JP-GSKJP-JP2024JPN163028AA

PATIENT

DRUGS (1)
  1. DAPRODUSTAT [Suspect]
     Active Substance: DAPRODUSTAT
     Route: 048

REACTIONS (4)
  - Peripheral artery occlusion [Unknown]
  - Asthenia [Unknown]
  - Sarcopenia [Unknown]
  - Malnutrition [Unknown]
